FAERS Safety Report 14350439 (Version 1)
Quarter: 2018Q1

REPORT INFORMATION
  Report Type: Spontaneous
  Country: CN (occurrence: CN)
  Receive Date: 20180104
  Receipt Date: 20180104
  Transmission Date: 20180509
  Serious: Yes (Hospitalization, Other)
  Sender: FDA-Public Use
  Company Number: CN-PFIZER INC-2018003512

PATIENT
  Age: 63 Year
  Sex: Male
  Weight: 70 kg

DRUGS (3)
  1. CELEBREX [Suspect]
     Active Substance: CELECOXIB
     Indication: PAIN IN EXTREMITY
     Dosage: 0.2 G, 2X/DAY
     Route: 048
     Dates: start: 20171123, end: 20171126
  2. THIOCTIC ACID [Suspect]
     Active Substance: THIOCTIC ACID
     Indication: DIABETIC NEUROPATHY
     Dosage: 0.6 G, 1X/DAY
     Route: 041
     Dates: start: 20171120, end: 20171128
  3. SODIUM CHLORIDE. [Concomitant]
     Active Substance: SODIUM CHLORIDE
     Indication: VEHICLE SOLUTION USE
     Dosage: 250 ML, 1X/DAY
     Route: 041
     Dates: start: 20171120, end: 20171128

REACTIONS (5)
  - Nausea [Not Recovered/Not Resolved]
  - Chest discomfort [Unknown]
  - Vomiting [Not Recovered/Not Resolved]
  - Hepatic function abnormal [Not Recovered/Not Resolved]
  - Asthma [Unknown]

NARRATIVE: CASE EVENT DATE: 20171128
